FAERS Safety Report 5051902-7 (Version None)
Quarter: 2006Q3

REPORT INFORMATION
  Report Type: 
  Country: None (occurrence: None)
  Receive Date: 20060711
  Receipt Date: 20060619
  Transmission Date: 20061208
  Serious: Yes (Other)
  Sender: FDA-Public Use
  Company Number: US200605006838

PATIENT
  Age: 9 Year
  Sex: Male

DRUGS (3)
  1. HUMATROPE [Suspect]
     Dosage: SEE IMAGE
     Dates: start: 20030301, end: 20030901
  2. HUMATROPE [Suspect]
     Dosage: SEE IMAGE
     Dates: start: 20040701
  3. HUMATROPEN [Concomitant]

REACTIONS (3)
  - GENERAL PHYSICAL HEALTH DETERIORATION [None]
  - GLIOMA [None]
  - PHARMACEUTICAL PRODUCT COMPLAINT [None]
